FAERS Safety Report 12179361 (Version 2)
Quarter: 2016Q2

REPORT INFORMATION
  Report Type: Spontaneous
  Country: FR (occurrence: FR)
  Receive Date: 20160314
  Receipt Date: 20160408
  Transmission Date: 20160815
  Serious: Yes (Congenital Anomaly)
  Sender: FDA-Public Use
  Company Number: FR-SA-2016SA049234

PATIENT

DRUGS (2)
  1. HUMALOG [Suspect]
     Active Substance: INSULIN LISPRO
     Route: 064
     Dates: start: 20160128
  2. LOVENOX [Suspect]
     Active Substance: ENOXAPARIN SODIUM
     Route: 064
     Dates: start: 201508, end: 20160226

REACTIONS (2)
  - Foetal exposure during pregnancy [Unknown]
  - Aneurysm [Recovered/Resolved]

NARRATIVE: CASE EVENT DATE: 20160225
